FAERS Safety Report 10468742 (Version 2)
Quarter: 2014Q4

REPORT INFORMATION
  Report Type: Spontaneous
  Country: NL (occurrence: NL)
  Receive Date: 20140923
  Receipt Date: 20141217
  Transmission Date: 20150528
  Serious: Yes (Hospitalization)
  Sender: FDA-Public Use
  Company Number: NL-AMGEN-NLDSP2014071675

PATIENT
  Age: 67 Year
  Sex: Male

DRUGS (17)
  1. DOCETAXEL. [Concomitant]
     Active Substance: DOCETAXEL
  2. ABIRATERONE [Concomitant]
     Active Substance: ABIRATERONE
     Dosage: 250 MG, QID
     Route: 048
  3. PREDNISONE. [Concomitant]
     Active Substance: PREDNISONE
  4. SILODYX [Concomitant]
     Active Substance: SILODOSIN
     Dosage: 8 MG, QD
     Route: 048
  5. PANTOPRAZOL TEVA [Concomitant]
     Dosage: 20 MG, QD
     Route: 048
  6. XGEVA [Suspect]
     Active Substance: DENOSUMAB
     Indication: PRODUCT USED FOR UNKNOWN INDICATION
     Dosage: UNK
     Route: 065
     Dates: start: 201407
  7. ZOLADEX [Concomitant]
     Active Substance: GOSERELIN ACETATE
     Dosage: UNK
     Dates: start: 201406
  8. MOVICOLON [Concomitant]
     Active Substance: POLYETHYLENE GLYCOL 3350\POTASSIUM CHLORIDE\SODIUM BICARBONATE\SODIUM CHLORIDE
     Dosage: UNK UNK, AS NECESSARY
     Route: 048
  9. ALFACALCIDOL [Concomitant]
     Active Substance: ALFACALCIDOL
     Dosage: 1 MUG, TID
     Route: 048
  10. TAXOTERE [Concomitant]
     Active Substance: DOCETAXEL
  11. PARACETAMOL [Concomitant]
     Active Substance: ACETAMINOPHEN
     Dosage: 500 MG, AS NECESSARY
     Route: 048
  12. PREDNISOLONE. [Concomitant]
     Active Substance: PREDNISOLONE
     Dosage: 5 MG, BID
     Route: 048
  13. PHOSPHATE                          /01053101/ [Concomitant]
     Dosage: 1 MMOL/ML, 1 X 30 MMOL PER DAY
     Route: 048
  14. SODIUM CHLORIDE + DEXTROSE [Concomitant]
     Dosage: 9 MG/ML (50ML), BID
     Route: 043
  15. OXYCODONE [Concomitant]
     Active Substance: OXYCODONE
     Dosage: 20 MG, BID
     Route: 048
  16. TEMAZEPAM. [Concomitant]
     Active Substance: TEMAZEPAM
     Dosage: 10 MG, QD
     Route: 048
  17. CALCIUM CARBONATE. [Concomitant]
     Active Substance: CALCIUM CARBONATE
     Dosage: 2.5 MG, BID
     Route: 048

REACTIONS (4)
  - Hypocalcaemia [Unknown]
  - Malaise [Unknown]
  - Pelvic pain [Unknown]
  - Prostatic specific antigen increased [Unknown]

NARRATIVE: CASE EVENT DATE: 201407
